FAERS Safety Report 21695401 (Version 1)
Quarter: 2022Q4

REPORT INFORMATION
  Report Type: Spontaneous
  Country: US (occurrence: US)
  Receive Date: 20221207
  Receipt Date: 20221207
  Transmission Date: 20230113
  Serious: Yes (Other)
  Sender: FDA-Public Use
  Company Number: US-AMNEAL PHARMACEUTICALS-2022-AMRX-03759

PATIENT
  Age: 58 Year
  Sex: Female

DRUGS (1)
  1. ALYMSYS [Suspect]
     Active Substance: BEVACIZUMAB-MALY
     Indication: Endometrial cancer
     Route: 065

REACTIONS (1)
  - Glomerulonephritis membranoproliferative [Recovering/Resolving]
